FAERS Safety Report 14366051 (Version 1)
Quarter: 2018Q1

REPORT INFORMATION
  Report Type: Spontaneous
  Country: JP (occurrence: JP)
  Receive Date: 20180109
  Receipt Date: 20180109
  Transmission Date: 20180509
  Serious: Yes (Hospitalization, Other)
  Sender: FDA-Public Use
  Company Number: JP-CIPLA LTD.-2017JP30990

PATIENT

DRUGS (4)
  1. CARBOPLATIN. [Suspect]
     Active Substance: CARBOPLATIN
     Indication: NON-SMALL CELL LUNG CANCER RECURRENT
     Dosage: AUC=5 DAY L, REDUCED DOSE; CYCLICAL, AUC=5 DAY L
     Route: 065
  2. CARBOPLATIN. [Suspect]
     Active Substance: CARBOPLATIN
     Indication: NON-SMALL CELL LUNG CANCER STAGE I
     Dosage: UNK, AUC=5 DAY 1
     Route: 065
  3. ETOPOSIDE. [Suspect]
     Active Substance: ETOPOSIDE
     Dosage: 100 MG/M2 DAYS 1-3
     Route: 065
  4. ETOPOSIDE. [Suspect]
     Active Substance: ETOPOSIDE
     Indication: NON-SMALL CELL LUNG CANCER RECURRENT
     Dosage: 100 MG/M2 DAYS 1-3
     Route: 065

REACTIONS (6)
  - Anaemia [Unknown]
  - Neutropenia [Unknown]
  - Drug resistance [Unknown]
  - Decreased appetite [Unknown]
  - Disease recurrence [Unknown]
  - Thrombocytopenia [Unknown]
